FAERS Safety Report 5794744-7 (Version None)
Quarter: 2008Q2

REPORT INFORMATION
  Report Type: 
  Country: None (occurrence: None)
  Receive Date: 20080625
  Receipt Date: 20080611
  Transmission Date: 20081010
  Serious: Yes (Hospitalization)
  Sender: FDA-Public Use
  Company Number: 2008S1010043

PATIENT
  Age: 4 Decade
  Sex: Female

DRUGS (4)
  1. AZATHIOPRINE [Suspect]
     Indication: COLITIS ULCERATIVE
     Dosage: 100 MG; DAILY;
     Dates: start: 20040801
  2. INFLIXIMAB (INFLIXIMAB) [Suspect]
     Indication: DRUG USE FOR UNKNOWN INDICATION
  3. PREDNISOLONE [Concomitant]
  4. MESALZINE (MESALAZINE) [Concomitant]

REACTIONS (3)
  - AUTOIMMUNE HEPATITIS [None]
  - CHRONIC HEPATITIS [None]
  - LUPUS-LIKE SYNDROME [None]
